FAERS Safety Report 8564509-1 (Version None)
Quarter: 2012Q3

REPORT INFORMATION
  Report Type: 
  Country: None (occurrence: None)
  Receive Date: 20120803
  Receipt Date: 20120726
  Transmission Date: 20120928
  Serious: Yes (Hospitalization)
  Sender: FDA-Public Use
  Company Number: US-JNJFOC-20111203973

PATIENT
  Sex: Male
  Weight: 63.5 kg

DRUGS (6)
  1. REMICADE [Suspect]
     Indication: ARTHRITIS
     Route: 042
     Dates: start: 20020101
  2. REMICADE [Suspect]
     Dosage: 5 VIALS
     Route: 042
  3. REMICADE [Suspect]
     Indication: RHEUMATOID ARTHRITIS
     Dosage: 5 VIALS
     Route: 042
  4. REMICADE [Suspect]
     Route: 042
     Dates: start: 20050101, end: 20111001
  5. REMICADE [Suspect]
     Route: 042
     Dates: start: 20020101
  6. REMICADE [Suspect]
     Route: 042
     Dates: start: 20050101, end: 20111001

REACTIONS (11)
  - CONCUSSION [None]
  - MYOCARDIAL INFARCTION [None]
  - FALL [None]
  - BODY HEIGHT DECREASED [None]
  - LOSS OF CONSCIOUSNESS [None]
  - LUNG DISORDER [None]
  - ASTHMA [None]
  - MALIGNANT MELANOMA [None]
  - BASAL CELL CARCINOMA [None]
  - MEMORY IMPAIRMENT [None]
  - MENTAL IMPAIRMENT [None]
